FAERS Safety Report 15922242 (Version 4)
Quarter: 2019Q4

REPORT INFORMATION
  Report Type: Spontaneous
  Country: FR (occurrence: FR)
  Receive Date: 20190206
  Receipt Date: 20191230
  Transmission Date: 20200122
  Serious: Yes (Hospitalization, Other)
  Sender: FDA-Public Use
  Company Number: FR-AUROBINDO-AUR-APL-2018-009795

PATIENT
  Age: 63 Year
  Sex: Female
  Weight: 45 kg

DRUGS (12)
  1. AFINITOR [Suspect]
     Active Substance: EVEROLIMUS
     Dosage: 2.5 MILLIGRAM, ONCE A DAY
     Route: 048
     Dates: start: 20170519
  2. FLUOROURACIL. [Suspect]
     Active Substance: FLUOROURACIL
     Dosage: 4190 MG, CYCLIC, EVERY 14 DAYS ; CYCLICAL
     Route: 065
     Dates: start: 20171012
  3. AFINITOR [Suspect]
     Active Substance: EVEROLIMUS
     Dosage: 5 MILLIGRAM, ONCE A DAY
     Route: 065
     Dates: start: 20170509
  4. OXALIPLATIN. [Suspect]
     Active Substance: OXALIPLATIN
     Indication: PRODUCT USED FOR UNKNOWN INDICATION
     Dosage: 130 MG (85 MG/M2), CYCLIC, EVERY 14 DAYS
     Route: 065
     Dates: start: 20171012, end: 20180301
  5. AFINITOR [Suspect]
     Active Substance: EVEROLIMUS
     Dosage: 5 MILLIGRAM, ONCE A DAY
     Route: 065
     Dates: start: 20170628
  6. FLUOROURACIL. [Suspect]
     Active Substance: FLUOROURACIL
     Indication: PANCREATIC NEUROENDOCRINE TUMOUR
     Dosage: 3600 MG (2400 MG/M2), CYCLIC, EVERY 14 DAYS
     Route: 065
     Dates: end: 20180301
  7. FLUOROURACIL. [Suspect]
     Active Substance: FLUOROURACIL
     Dosage: 3600 MG (2400 MG/M2), CYCLIC, EVERY 14 DAYS ; CYCLICAL
     Route: 065
     Dates: start: 20171012, end: 20180301
  8. ELOXATIN [Suspect]
     Active Substance: OXALIPLATIN
     Indication: PANCREATIC NEUROENDOCRINE TUMOUR
     Dosage: 130 MILLIGRAM, CYCLICAL ,(85 MG/M2), CYCLIC, EVERY 14 DAYS
     Route: 065
     Dates: start: 20171012, end: 20180301
  9. DACARBAZINE. [Concomitant]
     Active Substance: DACARBAZINE
     Indication: PRODUCT USED FOR UNKNOWN INDICATION
     Dosage: UNK
     Route: 065
     Dates: start: 20180405
  10. OCTREOTIDE SOLUTION FOR INJECTION [Suspect]
     Active Substance: OCTREOTIDE
     Indication: PANCREATIC NEUROENDOCRINE TUMOUR
     Dosage: 30 MILLIGRAM, CYCLICAL, EVERY 15 DAYS
     Route: 065
     Dates: start: 20170322
  11. AFINITOR [Suspect]
     Active Substance: EVEROLIMUS
     Indication: PANCREATIC NEUROENDOCRINE TUMOUR
     Dosage: 5 MILLIGRAM, ONCE A DAY
     Route: 065
     Dates: start: 20170322, end: 20171012
  12. AFINITOR [Suspect]
     Active Substance: EVEROLIMUS
     Dosage: 10 MILLIGRAM, ONCE A DAY
     Route: 065
     Dates: start: 20170401

REACTIONS (14)
  - Subileus [Recovered/Resolved]
  - Neuroendocrine tumour [Unknown]
  - Sepsis [Recovered/Resolved]
  - Neutropenia [Recovered/Resolved]
  - Dysgeusia [Not Recovered/Not Resolved]
  - Malignant neoplasm progression [Unknown]
  - Inappropriate schedule of product administration [Unknown]
  - Enterobacter sepsis [Recovered/Resolved]
  - Paraesthesia [Recovered/Resolved]
  - Decreased appetite [Recovering/Resolving]
  - Intestinal obstruction [Recovered/Resolved]
  - Anaemia [Recovered/Resolved]
  - Nausea [Recovered/Resolved]
  - Chest pain [Recovered/Resolved]

NARRATIVE: CASE EVENT DATE: 201110
